FAERS Safety Report 9830030 (Version 2)
Quarter: 2014Q1

REPORT INFORMATION
  Report Type: Spontaneous
  Country: US (occurrence: US)
  Receive Date: 20140120
  Receipt Date: 20140123
  Transmission Date: 20141002
  Serious: No
  Sender: FDA-Public Use
  Company Number: US-009507513-1401USA007281

PATIENT
  Sex: Female

DRUGS (5)
  1. DULERA [Suspect]
     Indication: ASTHMA
     Dosage: 2 PUFFS TWICE DAILY
     Route: 055
     Dates: start: 20131015
  2. XOPENEX [Suspect]
  3. BUDESONIDE [Suspect]
     Dosage: NEBULIZER SOLUTION
     Route: 055
  4. SINGULAIR [Concomitant]
     Route: 048
  5. ALLEGRA [Concomitant]

REACTIONS (4)
  - Dyspnoea [Unknown]
  - Nervousness [Unknown]
  - Drug dose omission [Unknown]
  - Product quality issue [Unknown]
